FAERS Safety Report 8360918-4 (Version None)
Quarter: 2012Q2

REPORT INFORMATION
  Report Type: 
  Country: None (occurrence: None)
  Receive Date: 20120515
  Receipt Date: 20120510
  Transmission Date: 20120825
  Serious: Yes (Disabling, Other)
  Sender: FDA-Public Use
  Company Number: CA-ROCHE-1067720

PATIENT
  Age: 56 Year
  Sex: Female

DRUGS (1)
  1. XELODA [Suspect]
     Indication: PRODUCT USED FOR UNKNOWN INDICATION
     Route: 048

REACTIONS (10)
  - BALANCE DISORDER [None]
  - MOBILITY DECREASED [None]
  - OPHTHALMOLOGICAL EXAMINATION ABNORMAL [None]
  - GAIT DISTURBANCE [None]
  - QUALITY OF LIFE DECREASED [None]
  - RHINORRHOEA [None]
  - VISUAL IMPAIRMENT [None]
  - VOMITING PROJECTILE [None]
  - PAIN IN EXTREMITY [None]
  - BLINDNESS [None]
